FAERS Safety Report 16886939 (Version 2)
Quarter: 2019Q4

REPORT INFORMATION
  Report Type: Report from Study
  Country: US (occurrence: US)
  Receive Date: 20191004
  Receipt Date: 20191106
  Transmission Date: 20200122
  Serious: Yes (Hospitalization)
  Sender: FDA-Public Use
  Company Number: US-GLAXOSMITHKLINE-US2019TSO177027

PATIENT
  Age: 68 Year
  Sex: Female
  Weight: 62.6 kg

DRUGS (5)
  1. NIRAPARIB [Suspect]
     Active Substance: NIRAPARIB
     Indication: GASTROINTESTINAL STROMAL TUMOUR
     Dosage: 200 MG, UNK
     Route: 048
     Dates: start: 20180515
  2. DOSTARLIMAB [Suspect]
     Active Substance: DOSTARLIMAB
     Indication: GASTROINTESTINAL STROMAL TUMOUR
     Dosage: 500 MG, SINGLE
     Route: 042
     Dates: start: 20180515, end: 20180515
  3. DOSTARLIMAB [Suspect]
     Active Substance: DOSTARLIMAB
     Dosage: 1000 MG, SINGLE
     Route: 042
     Dates: start: 20190820, end: 20190820
  4. BEVACIZUMAB. [Suspect]
     Active Substance: BEVACIZUMAB
     Indication: GASTROINTESTINAL STROMAL TUMOUR
     Dosage: 15 MG/KG, SINGLE
     Route: 042
     Dates: start: 20180515, end: 20180515
  5. BEVACIZUMAB. [Suspect]
     Active Substance: BEVACIZUMAB
     Dosage: 900 MG, SINGLE
     Route: 042
     Dates: start: 20190820, end: 20190820

REACTIONS (1)
  - Hyponatraemia [Recovered/Resolved]

NARRATIVE: CASE EVENT DATE: 20190915
